FAERS Safety Report 5722307-8 (Version None)
Quarter: 2008Q2

REPORT INFORMATION
  Report Type: 
  Country: None (occurrence: None)
  Receive Date: 20080429
  Receipt Date: 20070828
  Transmission Date: 20081010
  Serious: No
  Sender: FDA-Public Use
  Company Number: US-ASTRAZENECA-2007UW20518

PATIENT
  Age: 64 Year
  Sex: Female

DRUGS (6)
  1. NEXIUM [Suspect]
     Indication: GASTROOESOPHAGEAL REFLUX DISEASE
     Route: 048
     Dates: start: 20070101, end: 20070101
  2. SINGULAIR [Concomitant]
  3. CRESTOR [Concomitant]
     Route: 048
  4. ACTOS [Concomitant]
  5. VERAPAMIL [Concomitant]
  6. FEXOFENADINE [Concomitant]

REACTIONS (4)
  - DYSPNOEA [None]
  - LYMPHADENOPATHY [None]
  - PHARMACEUTICAL PRODUCT COMPLAINT [None]
  - RED BLOOD CELL COUNT INCREASED [None]
